FAERS Safety Report 4419841-X (Version None)
Quarter: 2004Q3

REPORT INFORMATION
  Report Type: 
  Country: None (occurrence: None)
  Receive Date: 20040804
  Receipt Date: 20040708
  Transmission Date: 20050211
  Serious: Yes (Other)
  Sender: FDA-Public Use
  Company Number: FR_040704431

PATIENT
  Age: 66 Year
  Sex: Male

DRUGS (3)
  1. PERGOLIDE MESYLATE [Suspect]
     Indication: PARKINSON'S DISEASE
     Dosage: 0.5 MG/3 DAY
     Dates: start: 20040101, end: 20040601
  2. SELEGILINE HCL [Concomitant]
  3. GLYCERINE SUPPOSITORIES [Concomitant]

REACTIONS (6)
  - ABDOMINAL PAIN LOWER [None]
  - BACK PAIN [None]
  - DYSURIA [None]
  - HYDRONEPHROSIS [None]
  - OEDEMA PERIPHERAL [None]
  - RETROPERITONEAL FIBROSIS [None]
